FAERS Safety Report 6419614-2 (Version None)
Quarter: 2009Q4

REPORT INFORMATION
  Report Type: 
  Country: None (occurrence: None)
  Receive Date: 20091013
  Receipt Date: 20090617
  Transmission Date: 20100525
  Serious: Yes (Other)
  Sender: FDA-Public Use
  Company Number: ADE2009-0677

PATIENT
  Age: 66 Year
  Sex: Female
  Weight: 56.246 kg

DRUGS (3)
  1. METOPROLOL TARTRATE [Suspect]
     Indication: BLOOD PRESSURE
     Dosage: 1 TABLET - BID
  2. ATORVASTATIN 20MG TABLET (LIPITOR, PFIZER) [Suspect]
     Indication: BLOOD CHOLESTEROL INCREASED
     Dosage: 1 TABLET - DAILY
  3. FORTEO [Suspect]
     Indication: BONE DEVELOPMENT ABNORMAL
     Dosage: INJECTION

REACTIONS (2)
  - BLOOD PRESSURE INCREASED [None]
  - DIZZINESS [None]
